FAERS Safety Report 4565255-1 (Version None)
Quarter: 2005Q1

REPORT INFORMATION
  Report Type: 
  Country: None (occurrence: None)
  Receive Date: 20050127
  Receipt Date: 20050127
  Transmission Date: 20050727
  Serious: Yes (Other)
  Sender: FDA-Public Use
  Company Number: None

PATIENT
  Age: 77 Year
  Sex: Male
  Weight: 86.1834 kg

DRUGS (1)
  1. OMEPRAZOLE [Suspect]
     Indication: HIATUS HERNIA
     Dosage: ONE PER DAY BY MOUTH
     Route: 048
     Dates: start: 20041001

REACTIONS (3)
  - GASTRIC DISORDER [None]
  - SWELLING [None]
  - WEIGHT DECREASED [None]
